FAERS Safety Report 14415428 (Version 1)
Quarter: 2018Q1

REPORT INFORMATION
  Report Type: Report from Study
  Country: US (occurrence: US)
  Receive Date: 20180121
  Receipt Date: 20180121
  Transmission Date: 20180509
  Serious: Yes (Other)
  Sender: FDA-Public Use
  Company Number: US-AMGEN-USASL2017182182

PATIENT
  Age: 84 Year
  Sex: Male

DRUGS (1)
  1. REPATHA [Suspect]
     Active Substance: EVOLOCUMAB
     Indication: HYPERCHOLESTEROLAEMIA
     Dosage: 140 MG, Q2WK
     Route: 065
     Dates: start: 20170602, end: 20171215

REACTIONS (4)
  - Intentional dose omission [Unknown]
  - Nasopharyngitis [Unknown]
  - Pneumonia [Unknown]
  - Influenza [Unknown]

NARRATIVE: CASE EVENT DATE: 2017
